FAERS Safety Report 20597353 (Version 1)
Quarter: 2022Q1

REPORT INFORMATION
  Report Type: Spontaneous
  Country: SG (occurrence: SG)
  Receive Date: 20220315
  Receipt Date: 20220315
  Transmission Date: 20220423
  Serious: Yes (Death)
  Sender: FDA-Public Use
  Company Number: SG-AstraZeneca-2022A106566

PATIENT
  Sex: Female

DRUGS (1)
  1. TRASTUZUMAB DERUXTECAN [Suspect]
     Active Substance: TRASTUZUMAB DERUXTECAN
     Indication: Human epidermal growth factor receptor negative
     Dosage: UNK
     Route: 042

REACTIONS (1)
  - Death [Fatal]
